FAERS Safety Report 7810517-5 (Version None)
Quarter: 2011Q4

REPORT INFORMATION
  Report Type: 
  Country: None (occurrence: None)
  Receive Date: 20111013
  Receipt Date: 20110929
  Transmission Date: 20120403
  Serious: Yes (Hospitalization, Other)
  Sender: FDA-Public Use
  Company Number: RO-RANBAXY-2011RR-48795

PATIENT
  Age: 67 Year
  Sex: Male

DRUGS (3)
  1. ENALAPRILUM [Concomitant]
     Indication: HYPERTENSION
     Dosage: UNK
     Route: 065
  2. MELOXICAM [Concomitant]
     Indication: ARTHRITIS
     Dosage: UNK
     Route: 065
  3. SIMVASTATIN [Suspect]
     Indication: HYPERCHOLESTEROLAEMIA
     Dosage: UNK
     Route: 065

REACTIONS (1)
  - ACUTE GENERALISED EXANTHEMATOUS PUSTULOSIS [None]
